FAERS Safety Report 5525698-6 (Version None)
Quarter: 2007Q4

REPORT INFORMATION
  Report Type: 
  Country: None (occurrence: None)
  Receive Date: 20071120
  Receipt Date: 20071120
  Transmission Date: 20080405
  Serious: Yes (Other)
  Sender: FDA-Public Use
  Company Number: None

PATIENT
  Age: 30 Year
  Sex: Female

DRUGS (1)
  1. ZICAM COLD REMEDY NASAL GEL [Suspect]
     Dates: start: 20070701, end: 20070701

REACTIONS (3)
  - ANOSMIA [None]
  - APPLICATION SITE IRRITATION [None]
  - NASAL DISCOMFORT [None]
